FAERS Safety Report 19803481 (Version 2)
Quarter: 2021Q3

REPORT INFORMATION
  Report Type: Spontaneous
  Country: GB (occurrence: GB)
  Receive Date: 20210908
  Receipt Date: 20210927
  Transmission Date: 20211014
  Serious: Yes (Death, Life-Threatening, Hospitalization, Other)
  Sender: FDA-Public Use
  Company Number: GB-ACCORD-237726

PATIENT
  Age: 24 Year
  Sex: Male

DRUGS (1)
  1. TACROLIMUS. [Suspect]
     Active Substance: TACROLIMUS
     Indication: LIVER TRANSPLANT

REACTIONS (10)
  - Embolism [Fatal]
  - Aspergillus infection [Fatal]
  - Myocarditis infectious [Fatal]
  - Splenic infarction [Fatal]
  - Endocarditis [Fatal]
  - Renal infarct [Fatal]
  - Cerebrovascular disorder [Fatal]
  - Sepsis [Fatal]
  - Abscess [Fatal]
  - Pericarditis infective [Fatal]
